FAERS Safety Report 9251499 (Version 2)
Quarter: 2013Q2

REPORT INFORMATION
  Report Type: Spontaneous
  Country: US (occurrence: US)
  Receive Date: 20130424
  Receipt Date: 20130522
  Transmission Date: 20140414
  Serious: Yes (Hospitalization, Other)
  Sender: FDA-Public Use
  Company Number: US-BRISTOL-MYERS SQUIBB COMPANY-18802769

PATIENT
  Age: 57 Year
  Sex: Female

DRUGS (1)
  1. YERVOY [Suspect]
     Indication: METASTATIC MALIGNANT MELANOMA
     Dosage: 7MAR13,28MAR13,18APR13,9MAY13
     Route: 042
     Dates: start: 20130307

REACTIONS (11)
  - Haemoptysis [Unknown]
  - Stomatitis [Unknown]
  - Rash [Unknown]
  - Hypoaesthesia [Unknown]
  - Paraesthesia [Unknown]
  - Immunosuppression [Unknown]
  - Streptococcus test positive [Unknown]
  - Staphylococcal infection [Unknown]
  - Malignant neoplasm progression [Unknown]
  - White blood cell count increased [Unknown]
  - Confusional state [Unknown]
